FAERS Safety Report 9581400 (Version 1)
Quarter: 2013Q4

REPORT INFORMATION
  Report Type: Spontaneous
  Country: US (occurrence: US)
  Receive Date: 20131002
  Receipt Date: 20131002
  Transmission Date: 20140711
  Serious: No
  Sender: FDA-Public Use
  Company Number: US-009507513-1309USA001859

PATIENT
  Sex: Male

DRUGS (1)
  1. COSOPT [Suspect]
     Indication: DEVELOPMENTAL GLAUCOMA
     Dosage: ONE DROP EACH EYE TWICE A DAY, MORNING AND EVENING
     Route: 047
     Dates: start: 201210

REACTIONS (3)
  - Drug administered to patient of inappropriate age [Unknown]
  - Off label use [Unknown]
  - No adverse event [Unknown]
